FAERS Safety Report 6257890-X (Version None)
Quarter: 2009Q3

REPORT INFORMATION
  Report Type: 
  Country: None (occurrence: None)
  Receive Date: 20090702
  Receipt Date: 20090622
  Transmission Date: 20100115
  Serious: Yes (Other)
  Sender: FDA-Public Use
  Company Number: OMPQ-UK-0906S-0442

PATIENT
  Age: 58 Year
  Sex: Female

DRUGS (1)
  1. OMNIPAQUE 300 [Suspect]
     Indication: WEIGHT DECREASED
     Dosage: SINGLE DOSE, I.V.
     Route: 042
     Dates: start: 20090309, end: 20090309

REACTIONS (6)
  - CONDITION AGGRAVATED [None]
  - DIARRHOEA [None]
  - FLUSHING [None]
  - HEADACHE [None]
  - MALAISE [None]
  - SERONEGATIVE ARTHRITIS [None]
